FAERS Safety Report 5627894-6 (Version None)
Quarter: 2008Q1

REPORT INFORMATION
  Report Type: 
  Country: None (occurrence: None)
  Receive Date: 20080215
  Receipt Date: 20080205
  Transmission Date: 20080703
  Serious: Yes (Congenital Anomaly, Other)
  Sender: FDA-Public Use
  Company Number: FR-JNJFOC-20080201931

PATIENT
  Sex: Male
  Weight: 3.64 kg

DRUGS (13)
  1. REMICADE [Suspect]
  2. REMICADE [Suspect]
  3. REMICADE [Suspect]
  4. REMICADE [Suspect]
  5. REMICADE [Suspect]
  6. REMICADE [Suspect]
     Indication: DRUG EXPOSURE DURING PREGNANCY
  7. AZATHIOPRINE [Concomitant]
  8. AZATHIOPRINE [Concomitant]
  9. AZATHIOPRINE [Concomitant]
  10. AZATHIOPRINE [Concomitant]
  11. AZATHIOPRINE [Concomitant]
     Indication: DRUG EXPOSURE DURING PREGNANCY
  12. LEDERFOLINE [Concomitant]
     Indication: DRUG EXPOSURE DURING PREGNANCY
  13. TARDYFERON [Concomitant]
     Indication: DRUG EXPOSURE DURING PREGNANCY

REACTIONS (1)
  - HAEMANGIOMA CONGENITAL [None]
